FAERS Safety Report 17001477 (Version 2)
Quarter: 2019Q4

REPORT INFORMATION
  Report Type: Spontaneous
  Country: PT (occurrence: PT)
  Receive Date: 20191106
  Receipt Date: 20191111
  Transmission Date: 20200122
  Serious: Yes (Other)
  Sender: FDA-Public Use
  Company Number: PT-AMERICAN REGENT INC-2019002375

PATIENT
  Age: 14 Year
  Sex: Female
  Weight: 55 kg

DRUGS (1)
  1. FERINJECT [Suspect]
     Active Substance: FERRIC CARBOXYMALTOSE
     Indication: IRON DEFICIENCY ANAEMIA
     Dosage: 1000 MILLIGRAM, 1 TOTAL
     Route: 042
     Dates: start: 20191004, end: 20191004

REACTIONS (4)
  - Skin warm [Recovered/Resolved]
  - Rash maculo-papular [Recovered/Resolved]
  - Erythema [Recovered/Resolved]
  - Pruritus [Recovered/Resolved]

NARRATIVE: CASE EVENT DATE: 20191004
